FAERS Safety Report 25615478 (Version 2)
Quarter: 2025Q3

REPORT INFORMATION
  Report Type: Spontaneous
  Country: EU (occurrence: EU)
  Receive Date: 20250729
  Receipt Date: 20250730
  Transmission Date: 20251021
  Serious: Yes (Hospitalization, Other)
  Sender: CELLTRION
  Company Number: EU-SANDOZ-SDZ2025PL024095

PATIENT

DRUGS (1)
  1. ADALIMUMAB [Suspect]
     Active Substance: ADALIMUMAB
     Indication: Ankylosing spondylitis
     Route: 065
     Dates: start: 2016, end: 202410

REACTIONS (8)
  - Basal cell naevus syndrome [Unknown]
  - Ankylosing spondylitis [Unknown]
  - Acute hepatitis B [Unknown]
  - Chronic hepatitis B [Unknown]
  - Melanocytic naevus [Unknown]
  - Herpes virus infection [Unknown]
  - Upper respiratory tract infection [Unknown]
  - Sinusitis [Unknown]

NARRATIVE: CASE EVENT DATE: 20230101
